FAERS Safety Report 22008356 (Version 11)
Quarter: 2023Q2

REPORT INFORMATION
  Report Type: Spontaneous
  Country: GB (occurrence: GB)
  Receive Date: 20230219
  Receipt Date: 20230626
  Transmission Date: 20230722
  Serious: Yes (Other)
  Sender: FDA-Public Use
  Company Number: GB-AUROBINDO-AUR-APL-2023-007151

PATIENT
  Age: 25 Year
  Sex: Female

DRUGS (21)
  1. LEFLUNOMIDE [Suspect]
     Active Substance: LEFLUNOMIDE
     Indication: Psoriatic arthropathy
     Dosage: UNK (RESTARTED)
     Route: 050
  2. LEFLUNOMIDE [Suspect]
     Active Substance: LEFLUNOMIDE
     Dosage: UNK (EVERY 6 MONTHS)
     Route: 065
  3. ADALIMUMAB [Suspect]
     Active Substance: ADALIMUMAB
     Indication: Psoriatic arthropathy
     Dosage: UNK (BIOSIMILAR)
     Route: 058
  4. ADALIMUMAB [Suspect]
     Active Substance: ADALIMUMAB
     Dosage: UNK
     Route: 050
  5. ADALIMUMAB [Suspect]
     Active Substance: ADALIMUMAB
     Dosage: UNK (SINGLE DOSE PEN) (BIOSIMILAR); ;
     Route: 058
  6. COSENTYX [Suspect]
     Active Substance: SECUKINUMAB
     Indication: Psoriatic arthropathy
     Dosage: UNK
     Route: 050
     Dates: start: 201903
  7. COSENTYX [Suspect]
     Active Substance: SECUKINUMAB
     Dosage: UNK
     Route: 050
     Dates: start: 201901
  8. ENBREL [Suspect]
     Active Substance: ETANERCEPT
     Indication: Psoriatic arthropathy
     Dosage: UNK
     Route: 050
  9. ETANERCEPT [Suspect]
     Active Substance: ETANERCEPT
     Indication: Psoriatic arthropathy
     Dosage: UNK
     Route: 050
  10. METHOTREXATE [Suspect]
     Active Substance: METHOTREXATE
     Indication: Psoriatic arthropathy
     Dosage: UNK
     Route: 058
     Dates: start: 201801, end: 202008
  11. METHOTREXATE [Suspect]
     Active Substance: METHOTREXATE
     Indication: Peripheral spondyloarthritis
     Dosage: UNK
     Route: 058
     Dates: start: 201809, end: 202008
  12. METHOTREXATE [Suspect]
     Active Substance: METHOTREXATE
     Dosage: UNK
     Route: 050
     Dates: start: 201809
  13. METHOTREXATE [Suspect]
     Active Substance: METHOTREXATE
     Dosage: UNK (RESTARTED)
     Route: 058
     Dates: start: 202008, end: 202008
  14. METHOTREXATE [Suspect]
     Active Substance: METHOTREXATE
     Dosage: UNK
     Route: 050
     Dates: start: 202008, end: 202008
  15. METHOTREXATE [Suspect]
     Active Substance: METHOTREXATE
     Dosage: UNK
     Route: 058
     Dates: start: 202001, end: 202008
  16. PREDNISOLONE [Suspect]
     Active Substance: PREDNISOLONE
     Indication: Psoriatic arthropathy
     Dosage: UNK ( SHORT COURSE)
     Route: 050
     Dates: start: 201903
  17. PREDNISOLONE [Suspect]
     Active Substance: PREDNISOLONE
     Indication: Peripheral spondyloarthritis
     Dosage: UNK ( SHORT COURSE)
     Route: 050
     Dates: start: 201901
  18. SECUKINUMAB [Suspect]
     Active Substance: SECUKINUMAB
     Indication: Psoriatic arthropathy
     Dosage: UNK
     Route: 065
     Dates: start: 201903
  19. SULFASALAZINE [Suspect]
     Active Substance: SULFASALAZINE
     Indication: Psoriatic arthropathy
     Dosage: UNK
     Route: 050
     Dates: start: 201809
  20. SULFASALAZINE [Suspect]
     Active Substance: SULFASALAZINE
     Indication: Peripheral spondyloarthritis
     Dosage: UNK
     Route: 050
     Dates: start: 201801
  21. TOFACITINIB [Suspect]
     Active Substance: TOFACITINIB
     Indication: Psoriatic arthropathy
     Dosage: UNK
     Route: 050
     Dates: start: 202001, end: 202008

REACTIONS (3)
  - Multiple-drug resistance [Unknown]
  - Unevaluable event [Unknown]
  - Drug ineffective [Unknown]
